FAERS Safety Report 7222781-4 (Version None)
Quarter: 2011Q1

REPORT INFORMATION
  Report Type: 
  Country: None (occurrence: None)
  Receive Date: 20110106
  Receipt Date: 20110106
  Transmission Date: 20110831
  Serious: Yes (Hospitalization)
  Sender: FDA-Public Use
  Company Number: None

PATIENT
  Age: 62 Year
  Sex: Female

DRUGS (8)
  1. MAGIC MOUTHWASH [Concomitant]
  2. CALCIUM [Concomitant]
  3. CELEXA [Concomitant]
  4. ARIMIDEX [Concomitant]
  5. VANCOMYCIN [Suspect]
     Indication: CELLULITIS
     Dosage: IV RECENT, 2ND DOSE
     Route: 042
  6. VIT D [Concomitant]
  7. MAXZIDE [Concomitant]
  8. ZOFRAN [Concomitant]

REACTIONS (1)
  - DRUG HYPERSENSITIVITY [None]
